FAERS Safety Report 13284966 (Version 1)
Quarter: 2017Q1

REPORT INFORMATION
  Report Type: Spontaneous
  Country: US (occurrence: US)
  Receive Date: 20170301
  Receipt Date: 20170301
  Transmission Date: 20170428
  Serious: No
  Sender: FDA-Public Use
  Company Number: US-PFIZER INC-2017088799

PATIENT
  Age: 73 Year
  Sex: Male
  Weight: 133 kg

DRUGS (1)
  1. CADUET [Suspect]
     Active Substance: AMLODIPINE BESYLATE\ATORVASTATIN CALCIUM
     Indication: CARDIAC DISORDER
     Dosage: 1 DF, 1X/DAY
     Route: 048

REACTIONS (2)
  - Burning mouth syndrome [Unknown]
  - Head discomfort [Unknown]
